FAERS Safety Report 15552407 (Version 1)
Quarter: 2018Q4

REPORT INFORMATION
  Report Type: Spontaneous
  Country: KR (occurrence: KR)
  Receive Date: 20181025
  Receipt Date: 20181025
  Transmission Date: 20190205
  Serious: Yes (Other)
  Sender: FDA-Public Use
  Company Number: KR-ROCHE-2205120

PATIENT
  Age: 40 Year
  Sex: Male

DRUGS (14)
  1. AVASTIN [Concomitant]
     Active Substance: BEVACIZUMAB
     Dosage: UNK UNK, QID
     Route: 031
     Dates: start: 2016, end: 2016
  2. LUCENTIS [Suspect]
     Active Substance: RANIBIZUMAB
     Dosage: UNK
     Route: 031
     Dates: start: 2017, end: 2017
  3. AVASTIN [Concomitant]
     Active Substance: BEVACIZUMAB
     Dosage: UNK
     Route: 031
     Dates: start: 2017, end: 2017
  4. AVASTIN [Concomitant]
     Active Substance: BEVACIZUMAB
     Indication: DIABETIC RETINAL OEDEMA
     Dosage: UNK
     Route: 031
     Dates: start: 2015, end: 2015
  5. LUCENTIS [Suspect]
     Active Substance: RANIBIZUMAB
     Dosage: UNK
     Route: 031
     Dates: start: 2015, end: 2015
  6. LUCENTIS [Suspect]
     Active Substance: RANIBIZUMAB
     Dosage: UNK
     Route: 031
     Dates: start: 2017, end: 2017
  7. AVASTIN [Concomitant]
     Active Substance: BEVACIZUMAB
     Dosage: UNK
     Route: 031
     Dates: start: 2016, end: 2016
  8. AVASTIN [Concomitant]
     Active Substance: BEVACIZUMAB
     Dosage: UNK UNK, BID
     Route: 031
     Dates: start: 2015, end: 2015
  9. AVASTIN [Concomitant]
     Active Substance: BEVACIZUMAB
     Dosage: UNK
     Route: 031
     Dates: start: 2017, end: 2017
  10. EYLEA [Concomitant]
     Active Substance: AFLIBERCEPT
     Indication: DIABETIC RETINAL OEDEMA
     Dosage: UNK
     Route: 031
     Dates: start: 2016, end: 2016
  11. LUCENTIS [Suspect]
     Active Substance: RANIBIZUMAB
     Indication: DIABETIC RETINAL OEDEMA
     Dosage: UNK
     Route: 031
     Dates: start: 2015, end: 2015
  12. LUCENTIS [Suspect]
     Active Substance: RANIBIZUMAB
     Dosage: UNK
     Route: 031
     Dates: start: 2017, end: 2017
  13. LUCENTIS [Suspect]
     Active Substance: RANIBIZUMAB
     Dosage: UNK
     Route: 031
     Dates: start: 2017, end: 2017
  14. AVASTIN [Concomitant]
     Active Substance: BEVACIZUMAB
     Dosage: UNK
     Route: 031
     Dates: start: 2016, end: 2016

REACTIONS (1)
  - Disease progression [Unknown]

NARRATIVE: CASE EVENT DATE: 20160526
